FAERS Safety Report 24805821 (Version 1)
Quarter: 2025Q1

REPORT INFORMATION
  Report Type: Spontaneous
  Country: US (occurrence: US)
  Receive Date: 20250103
  Receipt Date: 20250103
  Transmission Date: 20250409
  Serious: Yes (Other)
  Sender: PFIZER
  Company Number: US-BRISTOL-MYERS SQUIBB COMPANY-2024-199606

PATIENT
  Sex: Female

DRUGS (15)
  1. ELIQUIS [Suspect]
     Active Substance: APIXABAN
  2. IBRANCE [Suspect]
     Active Substance: PALBOCICLIB
     Dosage: 1 TABLET TAKEN ONCE DAILY FOR 21 DAYS FOLLOWED BY A 7-DAY REST PERIOD.
     Route: 048
  3. IBRANCE [Suspect]
     Active Substance: PALBOCICLIB
     Dosage: 1 TABLET TAKEN ONCE DAILY FOR 21 DAYS FOLLOWED BY A 7-DAY REST PERIOD.
     Route: 048
  4. ZITHROMAX [Suspect]
     Active Substance: AZITHROMYCIN DIHYDRATE
  5. ZOMETA [Suspect]
     Active Substance: ZOLEDRONIC ACID
  6. LETROZOLE [Suspect]
     Active Substance: LETROZOLE
  7. PANTOPRAZOLE SODIUM [Concomitant]
     Active Substance: PANTOPRAZOLE SODIUM
  8. VITAMIN C [Concomitant]
     Active Substance: ASCORBIC ACID
  9. DIETARY SUPPLEMENT [Concomitant]
     Active Substance: DIETARY SUPPLEMENT
  10. VITAMINS [Concomitant]
     Active Substance: VITAMINS
  11. VITAMIN D3 [Concomitant]
     Active Substance: CHOLECALCIFEROL
  12. HYDROGEN PEROXIDE [Concomitant]
     Active Substance: HYDROGEN PEROXIDE
  13. VITAMIN B12 [Concomitant]
     Active Substance: CYANOCOBALAMIN
  14. CALTRATE WITH VITAMIN D [Concomitant]
     Active Substance: CALCIUM CARBONATE\CHOLECALCIFEROL
  15. VITAMIN K2 + D3 [COLECALCIFEROL;MENAQUINONE] [Concomitant]

REACTIONS (10)
  - Bone cancer [Unknown]
  - Arthropathy [Unknown]
  - Arthralgia [Unknown]
  - Influenza like illness [Unknown]
  - Feeling cold [Unknown]
  - Flushing [Unknown]
  - Nasal congestion [Unknown]
  - Fatigue [Unknown]
  - Emotional disorder [Unknown]
  - White blood cell count decreased [Unknown]
